FAERS Safety Report 5625938-9 (Version None)
Quarter: 2008Q1

REPORT INFORMATION
  Report Type: 
  Country: None (occurrence: None)
  Receive Date: 20080212
  Receipt Date: 20080212
  Transmission Date: 20080703
  Serious: No
  Sender: FDA-Public Use
  Company Number: None

PATIENT
  Age: 73 Year
  Sex: Female
  Weight: 49.8957 kg

DRUGS (1)
  1. BOTOX [Suspect]
     Indication: BLEPHAROSPASM
     Dates: start: 20010601, end: 20071217

REACTIONS (5)
  - DRUG INEFFECTIVE [None]
  - DYSPHAGIA [None]
  - DYSTONIA [None]
  - MUSCULAR WEAKNESS [None]
  - SPEECH DISORDER [None]
